FAERS Safety Report 17201673 (Version 1)
Quarter: 2019Q4

REPORT INFORMATION
  Report Type: Spontaneous
  Country: US (occurrence: US)
  Receive Date: 20191226
  Receipt Date: 20191226
  Transmission Date: 20200122
  Serious: Yes (Hospitalization)
  Sender: FDA-Public Use
  Company Number: US-PFIZER INC-2019550563

PATIENT
  Age: 73 Year
  Sex: Female
  Weight: 108.86 kg

DRUGS (1)
  1. VYNDAQEL [Suspect]
     Active Substance: TAFAMIDIS MEGLUMINE
     Indication: CARDIAC DISORDER
     Dosage: 80 MG, 1X/DAY (20MG, 4 PILLS ONCE A DAY BY MOUTH)
     Route: 048
     Dates: start: 2019

REACTIONS (1)
  - Limb discomfort [Unknown]
